FAERS Safety Report 5796726-8 (Version None)
Quarter: 2008Q3

REPORT INFORMATION
  Report Type: 
  Country: None (occurrence: None)
  Receive Date: 20080701
  Receipt Date: 20080620
  Transmission Date: 20090109
  Serious: No
  Sender: FDA-Public Use
  Company Number: FR-MERCK-0805FRA00013

PATIENT
  Age: 0 Day
  Sex: Female
  Weight: 3 kg

DRUGS (8)
  1. ISENTRESS [Suspect]
     Indication: HIV INFECTION
     Route: 064
     Dates: start: 20080401
  2. MARAVIROC [Concomitant]
     Route: 064
     Dates: start: 20051228
  3. ENFUVIRTIDE [Concomitant]
     Indication: HIV INFECTION
     Route: 064
     Dates: start: 20080114, end: 20080422
  4. ENFUVIRTIDE [Concomitant]
     Route: 064
     Dates: start: 20080423, end: 20080424
  5. ENFUVIRTIDE [Concomitant]
     Route: 064
     Dates: start: 20080425, end: 20080518
  6. FOSAMPRENAVIR CALCIUM [Concomitant]
     Indication: HIV INFECTION
     Route: 064
     Dates: start: 20080114, end: 20080617
  7. RITONAVIR [Concomitant]
     Indication: HIV INFECTION
     Route: 064
     Dates: start: 20010423, end: 20080617
  8. CRIXIVAN [Concomitant]
     Indication: HIV INFECTION
     Route: 064
     Dates: start: 20051228, end: 20080617

REACTIONS (1)
  - NORMAL NEWBORN [None]
